FAERS Safety Report 7526243-6 (Version None)
Quarter: 2011Q2

REPORT INFORMATION
  Report Type: 
  Country: None (occurrence: None)
  Receive Date: 20110606
  Receipt Date: 20110527
  Transmission Date: 20111010
  Serious: Yes (Other)
  Sender: FDA-Public Use
  Company Number: PHHY2011TR46380

PATIENT
  Age: 14 Year
  Sex: Male

DRUGS (6)
  1. DEXAMETHASONE [Suspect]
  2. LINEZOLID [Concomitant]
  3. COTRIM [Suspect]
  4. CASPOFUNGIN ACETATE [Concomitant]
  5. NETILMICIN [Concomitant]
  6. CYCLOPHOSPHAMIDE [Suspect]

REACTIONS (10)
  - AFFECTIVE DISORDER [None]
  - LOGORRHOEA [None]
  - FLIGHT OF IDEAS [None]
  - DELUSION OF GRANDEUR [None]
  - ABNORMAL BEHAVIOUR [None]
  - ELEVATED MOOD [None]
  - IRRITABILITY [None]
  - MANIA [None]
  - INSOMNIA [None]
  - PRESSURE OF SPEECH [None]
